FAERS Safety Report 17766034 (Version 1)
Quarter: 2020Q2

REPORT INFORMATION
  Report Type: Spontaneous
  Country: US (occurrence: US)
  Receive Date: 20200511
  Receipt Date: 20200511
  Transmission Date: 20200714
  Serious: Yes (Hospitalization)
  Sender: FDA-Public Use
  Company Number: None

PATIENT
  Age: 68 Year
  Sex: Male

DRUGS (2)
  1. EVEROLIMUS. [Suspect]
     Active Substance: EVEROLIMUS
     Indication: RENAL CANCER
     Route: 048
  2. LENVIMA [Concomitant]
     Active Substance: LENVATINIB
     Dates: start: 20190925

REACTIONS (1)
  - Emergency care [None]

NARRATIVE: CASE EVENT DATE: 20200508
